FAERS Safety Report 4323053-8 (Version None)
Quarter: 2004Q1

REPORT INFORMATION
  Report Type: 
  Country: None (occurrence: None)
  Receive Date: 20040322
  Receipt Date: 20040316
  Transmission Date: 20041129
  Serious: Yes (Death, Life-Threatening)
  Sender: FDA-Public Use
  Company Number: PERC20040013

PATIENT
  Age: 46 Year
  Sex: Male

DRUGS (1)
  1. PERCOCET [Suspect]
     Dates: end: 20030301

REACTIONS (2)
  - COMPLETED SUICIDE [None]
  - THERAPEUTIC AGENT TOXICITY [None]
